FAERS Safety Report 11980026 (Version 4)
Quarter: 2016Q2

REPORT INFORMATION
  Report Type: Spontaneous
  Country: JP (occurrence: JP)
  Receive Date: 20160129
  Receipt Date: 20160531
  Transmission Date: 20160815
  Serious: Yes (Death, Life-Threatening, Hospitalization, Other)
  Sender: FDA-Public Use
  Company Number: JP-SHIRE-JP201601034

PATIENT
  Age: 72 Year
  Sex: Female

DRUGS (9)
  1. AMLODIPINE [Concomitant]
     Active Substance: AMLODIPINE BESYLATE
     Indication: HYPERTENSION
     Dosage: 10 MG, 1X/DAY:QD (OD)
     Route: 048
  2. RHUBARB DRY EXTRACT [Concomitant]
     Indication: CONSTIPATION
     Dosage: 1.0 G, UNKNOWN
     Route: 048
  3. PRECIPITATED CALCIUM CARBONATE [Concomitant]
     Active Substance: CALCIUM CARBONATE
     Indication: HYPERPHOSPHATAEMIA
     Dosage: 3000 MG, UNKNOWN
     Route: 048
  4. WARFARIN POTASSIUM [Concomitant]
     Active Substance: WARFARIN POTASSIUM
     Indication: ARRHYTHMIA
     Dosage: 0.5 MG, UNKNOWN
     Route: 048
  5. SODIUM RABEPRAZOLE [Concomitant]
     Active Substance: RABEPRAZOLE SODIUM
     Indication: GASTROOESOPHAGEAL REFLUX DISEASE
     Dosage: 10 MG, UNKNOWN
     Route: 048
  6. TAMBOCOR [Concomitant]
     Active Substance: FLECAINIDE ACETATE
     Indication: ARRHYTHMIA
     Dosage: 50 MG, UNKNOWN
     Route: 048
  7. AMITIZA [Concomitant]
     Active Substance: LUBIPROSTONE
     Indication: CONSTIPATION
     Dosage: 24 ?G, UNKNOWN
     Route: 048
  8. FOSRENOL [Suspect]
     Active Substance: LANTHANUM CARBONATE
     Indication: HYPERPHOSPHATAEMIA
     Dosage: 750 MG, UNKNOWN (PER DAY)
     Route: 048
     Dates: start: 20131101, end: 20150203
  9. DAIKENCHUTO [Concomitant]
     Active Substance: HERBALS
     Indication: CONSTIPATION
     Dosage: 7.5 G, UNKNOWN
     Route: 048

REACTIONS (9)
  - Medication residue present [Unknown]
  - Colitis [Recovered/Resolved with Sequelae]
  - Septic shock [Unknown]
  - Intestinal obstruction [Recovered/Resolved with Sequelae]
  - Diverticulitis intestinal haemorrhagic [Unknown]
  - Arrhythmia [Unknown]
  - Sepsis [Fatal]
  - Cardiac failure congestive [Unknown]
  - Large intestinal stenosis [Unknown]

NARRATIVE: CASE EVENT DATE: 20150128
